FAERS Safety Report 19024475 (Version 1)
Quarter: 2021Q1

REPORT INFORMATION
  Report Type: Spontaneous
  Country: DE (occurrence: DE)
  Receive Date: 20210317
  Receipt Date: 20210317
  Transmission Date: 20210420
  Serious: Yes (Other)
  Sender: FDA-Public Use
  Company Number: DE-AMGEN-DEUNI2021039863

PATIENT
  Age: 58 Year
  Sex: Male
  Weight: 67 kg

DRUGS (6)
  1. BEVACIZUMAB. [Suspect]
     Active Substance: BEVACIZUMAB
     Indication: NON-SMALL CELL LUNG CANCER
     Dosage: UNK
     Route: 042
     Dates: start: 20201210
  2. PACLITAXEL. [Suspect]
     Active Substance: PACLITAXEL
     Indication: NON-SMALL CELL LUNG CANCER
     Dosage: UNK
     Route: 042
     Dates: start: 20201210
  3. ATEZOLIZUMAB. [Suspect]
     Active Substance: ATEZOLIZUMAB
     Indication: NON-SMALL CELL LUNG CANCER
     Dosage: UNK
     Route: 042
     Dates: start: 20201210
  4. LOPERAMIDE [Concomitant]
     Active Substance: LOPERAMIDE
     Dosage: UNK
     Route: 048
     Dates: start: 20201210
  5. CARBOPLATIN. [Suspect]
     Active Substance: CARBOPLATIN
     Indication: NON-SMALL CELL LUNG CANCER
     Dosage: UNK
     Route: 042
     Dates: start: 20201211
  6. HYDROCORTISON [HYDROCORTISONE] [Concomitant]
     Dosage: 5 MILLIGRAM, QD
     Route: 048
     Dates: start: 20210201

REACTIONS (3)
  - Adrenal insufficiency [Not Recovered/Not Resolved]
  - Diarrhoea [Recovered/Resolved]
  - Fatigue [Not Recovered/Not Resolved]

NARRATIVE: CASE EVENT DATE: 20201210
